FAERS Safety Report 22046179 (Version 2)
Quarter: 2023Q2

REPORT INFORMATION
  Report Type: Report from Study
  Country: US (occurrence: US)
  Receive Date: 20230228
  Receipt Date: 20230518
  Transmission Date: 20230722
  Serious: Yes (Other)
  Sender: FDA-Public Use
  Company Number: US-JAZZ-2019-US-015039

PATIENT
  Sex: Female

DRUGS (26)
  1. XYREM [Suspect]
     Active Substance: SODIUM OXYBATE
     Indication: Narcolepsy
     Dosage: 4.5 G, BID
     Route: 048
     Dates: start: 201311, end: 201506
  2. XYREM [Suspect]
     Active Substance: SODIUM OXYBATE
     Indication: Cataplexy
     Dosage: DOSE ADJUSTMENT
     Route: 048
     Dates: start: 201506, end: 201910
  3. XYREM [Suspect]
     Active Substance: SODIUM OXYBATE
     Indication: Somnolence
     Dosage: 4.5 G, BID
     Route: 048
     Dates: start: 201910
  4. METFORMIN [Suspect]
     Active Substance: METFORMIN HYDROCHLORIDE
     Indication: Product used for unknown indication
     Dosage: UNK
     Dates: start: 20131025, end: 201908
  5. MINIPRESS [Concomitant]
     Active Substance: PRAZOSIN HYDROCHLORIDE
  6. CLONAZEPAM [Concomitant]
     Active Substance: CLONAZEPAM
  7. LAMICTAL [Concomitant]
     Active Substance: LAMOTRIGINE
  8. MODAFINIL [Concomitant]
     Active Substance: MODAFINIL
  9. VITAMIN B12 [Concomitant]
     Active Substance: CYANOCOBALAMIN
     Dosage: UNK
  10. LUNESTA [Concomitant]
     Active Substance: ESZOPICLONE
     Dosage: UNK
  11. POTASSIUM CHLORIDE [Concomitant]
     Active Substance: POTASSIUM CHLORIDE
     Dosage: UNK
  12. GABITRIL [Concomitant]
     Active Substance: TIAGABINE HYDROCHLORIDE
     Dosage: UNK
  13. LO LOESTRIN FE [Concomitant]
     Active Substance: ETHINYL ESTRADIOL\NORETHINDRONE ACETATE
     Dosage: UNK
  14. VIIBRYD [Concomitant]
     Active Substance: VILAZODONE HYDROCHLORIDE
     Indication: Product used for unknown indication
     Dosage: UNK
     Dates: start: 20131024
  15. CHLORTHALIDONE [Concomitant]
     Active Substance: CHLORTHALIDONE
     Dosage: UNK
  16. CYTOMEL [Concomitant]
     Active Substance: LIOTHYRONINE SODIUM
     Dosage: UNK
  17. DEPAKOTE [Concomitant]
     Active Substance: DIVALPROEX SODIUM
     Dosage: UNK
  18. DIVALPROEX SODIUM [Concomitant]
     Active Substance: DIVALPROEX SODIUM
     Dosage: UNK
  19. LEVOMEFOLIC ACID [Concomitant]
     Active Substance: LEVOMEFOLIC ACID
     Dosage: UNK
  20. MINASTRIN 24 FE [Concomitant]
     Active Substance: ETHINYL ESTRADIOL\NORETHINDRONE ACETATE
     Dosage: UNK
  21. MUCINEX [Concomitant]
     Active Substance: GUAIFENESIN
     Dosage: UNK
  22. PRAZOSIN [Concomitant]
     Active Substance: PRAZOSIN
     Dosage: UNK
  23. PROPRANOLOL [Concomitant]
     Active Substance: PROPRANOLOL HYDROCHLORIDE
     Dosage: UNK
  24. VICODIN [Concomitant]
     Active Substance: ACETAMINOPHEN\HYDROCODONE BITARTRATE
     Dosage: UNK
  25. ADDERALL [Concomitant]
     Active Substance: AMPHETAMINE ASPARTATE\AMPHETAMINE SULFATE\DEXTROAMPHETAMINE SACCHARATE\DEXTROAMPHETAMINE SULFATE
     Dosage: UNK
  26. ADVAIR HFA [Concomitant]
     Active Substance: FLUTICASONE PROPIONATE\SALMETEROL XINAFOATE
     Indication: Cough
     Dosage: UNK
     Dates: start: 20230210, end: 20230212

REACTIONS (9)
  - Hypothyroidism [Recovering/Resolving]
  - Pruritus [Unknown]
  - Polycystic ovaries [Unknown]
  - Uterine leiomyoma [Unknown]
  - Gastrointestinal disorder [Recovered/Resolved]
  - Fibromyalgia [Unknown]
  - Chronic fatigue syndrome [Not Recovered/Not Resolved]
  - Nausea [Recovered/Resolved]
  - Diarrhoea [Recovered/Resolved]
